FAERS Safety Report 4305530-9 (Version None)
Quarter: 2004Q1

REPORT INFORMATION
  Report Type: 
  Country: None (occurrence: None)
  Receive Date: 20040226
  Receipt Date: 20031114
  Transmission Date: 20041129
  Serious: No
  Sender: FDA-Public Use
  Company Number: US-BRISTOL-MYERS SQUIBB COMPANY-12436150

PATIENT
  Age: 7 Decade
  Sex: Female

DRUGS (3)
  1. ABILIFY [Suspect]
     Indication: BIPOLAR DISORDER
     Dosage: 15 MG/DAY, DECREASED TO 10 MG/DAY, THEN 7.5 MG/DAY.
     Route: 048
  2. DEPAKOTE [Concomitant]
  3. PROPRANOLOL [Concomitant]

REACTIONS (1)
  - HYPERTENSION [None]
